FAERS Safety Report 25895227 (Version 1)
Quarter: 2025Q4

REPORT INFORMATION
  Report Type: Spontaneous
  Country: GB (occurrence: GB)
  Receive Date: 20251008
  Receipt Date: 20251008
  Transmission Date: 20260118
  Serious: Yes (Other)
  Sender: MSN LABORATORIES PRIVATE LIMITED
  Company Number: None

PATIENT

DRUGS (1)
  1. ATORVASTATIN [Suspect]
     Active Substance: ATORVASTATIN
     Indication: Product used for unknown indication
     Dosage: 10MG TO BE TAKEN ONCE A DAY
     Route: 065
     Dates: start: 20240402, end: 20250911

REACTIONS (2)
  - Loss of libido [Recovered/Resolved]
  - Fatigue [Recovered/Resolved]
